FAERS Safety Report 16125217 (Version 2)
Quarter: 2019Q2

REPORT INFORMATION
  Report Type: Spontaneous
  Country: JP (occurrence: JP)
  Receive Date: 20190327
  Receipt Date: 20190409
  Transmission Date: 20190711
  Serious: Yes (Other)
  Sender: FDA-Public Use
  Company Number: PHJP2019JP003674

PATIENT
  Sex: Female
  Weight: .54 kg

DRUGS (2)
  1. TEGRETOL [Suspect]
     Active Substance: CARBAMAZEPINE
     Indication: FOETAL EXPOSURE DURING PREGNANCY
     Dosage: UNK
     Route: 064
  2. BIFIDOBACTERIUM BIFIDUM [Concomitant]
     Active Substance: BIFIDOBACTERIUM BIFIDUM
     Indication: PRODUCT USED FOR UNKNOWN INDICATION
     Dosage: UNK
     Route: 065

REACTIONS (8)
  - Neonatal respiratory distress syndrome [Unknown]
  - Gastrointestinal perforation [Unknown]
  - Blood pressure decreased [Unknown]
  - Hiatus hernia [Unknown]
  - Patent ductus arteriosus [Unknown]
  - Foetal exposure during pregnancy [Unknown]
  - Low birth weight baby [Unknown]
  - Mechanical ileus [Unknown]
